FAERS Safety Report 9153361 (Version 1)
Quarter: 2013Q1

REPORT INFORMATION
  Report Type: Spontaneous
  Country: US (occurrence: None)
  Receive Date: 20130131
  Receipt Date: 20130131
  Transmission Date: 20140127
  Serious: No
  Sender: FDA-Public Use
  Company Number: A1009272A

PATIENT
  Sex: Female

DRUGS (1)
  1. CALCIUM CARBONATE (FORMULATION UNKNOWN) (CALCIUM CARBONATE) [Suspect]

REACTIONS (2)
  - Headache [None]
  - Choking [None]
